FAERS Safety Report 17041161 (Version 3)
Quarter: 2019Q4

REPORT INFORMATION
  Report Type: Report from Study
  Country: US (occurrence: US)
  Receive Date: 20191118
  Receipt Date: 20191122
  Transmission Date: 20200122
  Serious: Yes (Other)
  Sender: FDA-Public Use
  Company Number: US-BIOGEN-2019BI00807333

PATIENT
  Sex: Female

DRUGS (1)
  1. TECFIDERA [Suspect]
     Active Substance: DIMETHYL FUMARATE
     Indication: MULTIPLE SCLEROSIS
     Route: 065
     Dates: start: 20170825, end: 2018

REACTIONS (6)
  - Vein disorder [Unknown]
  - Trigger finger [Unknown]
  - Vein rupture [Unknown]
  - Injection site mass [Unknown]
  - Diabetes mellitus [Unknown]
  - Injection site scar [Unknown]
